FAERS Safety Report 5235755-X (Version None)
Quarter: 2007Q1

REPORT INFORMATION
  Report Type: 
  Country: None (occurrence: None)
  Receive Date: 20070212
  Receipt Date: 20070130
  Transmission Date: 20070707
  Serious: Yes (Life-Threatening, Hospitalization, Other)
  Sender: FDA-Public Use
  Company Number: FR-PFIZER INC-2006141415

PATIENT
  Sex: Male
  Weight: 70.7 kg

DRUGS (13)
  1. LYRICA [Suspect]
  2. ALL OTHER THERAPEUTIC PRODUCTS [Concomitant]
  3. LAMOTRIGINE [Concomitant]
     Route: 048
  4. VALPROIC ACID [Concomitant]
     Route: 048
  5. LEVOTHYROXINE SODIUM [Concomitant]
     Route: 048
  6. CLONAZEPAM [Concomitant]
     Route: 048
  7. CARBAMAZEPINE [Concomitant]
     Route: 048
  8. ZOPICLONE [Concomitant]
     Route: 048
  9. TRIHEXYPHENIDYL HYDROCHLORIDE [Concomitant]
     Route: 048
  10. TOCOPHEROL CONCENTRATE CAP [Concomitant]
     Route: 048
  11. GLYCEROL 2.6% [Concomitant]
  12. MACROGOL [Concomitant]
  13. ISPAGHULA [Concomitant]

REACTIONS (2)
  - COMA [None]
  - UNEVALUABLE EVENT [None]
